FAERS Safety Report 26095183 (Version 1)
Quarter: 2025Q4

REPORT INFORMATION
  Report Type: Spontaneous
  Country: CA (occurrence: CA)
  Receive Date: 20251127
  Receipt Date: 20251127
  Transmission Date: 20260117
  Serious: Yes (Congenital Anomaly)
  Sender: BRISTOL-MYERS SQUIBB COMPANY
  Company Number: CA-BRISTOL-MYERS SQUIBB COMPANY-2025-158500

PATIENT

DRUGS (150)
  1. TRIAMCINOLONE ACETONIDE [Suspect]
     Active Substance: TRIAMCINOLONE ACETONIDE
     Indication: Product used for unknown indication
     Dosage: SUSPENSION INTRA- ARTICULAR
  2. TRIAMCINOLONE ACETONIDE [Suspect]
     Active Substance: TRIAMCINOLONE ACETONIDE
  3. TRIAMCINOLONE ACETONIDE [Suspect]
     Active Substance: TRIAMCINOLONE ACETONIDE
  4. TRIAMCINOLONE ACETONIDE [Suspect]
     Active Substance: TRIAMCINOLONE ACETONIDE
  5. ACETAMINOPHEN [Concomitant]
     Active Substance: ACETAMINOPHEN
     Indication: Product used for unknown indication
  6. ACETAMINOPHEN [Concomitant]
     Active Substance: ACETAMINOPHEN
  7. ACETAMINOPHEN [Concomitant]
     Active Substance: ACETAMINOPHEN
  8. ACETAMINOPHEN [Concomitant]
     Active Substance: ACETAMINOPHEN
  9. ACETAMINOPHEN [Concomitant]
     Active Substance: ACETAMINOPHEN
  10. AIMOVIG [Concomitant]
     Active Substance: ERENUMAB-AOOE
     Indication: Product used for unknown indication
  11. AIMOVIG [Concomitant]
     Active Substance: ERENUMAB-AOOE
  12. AIMOVIG [Concomitant]
     Active Substance: ERENUMAB-AOOE
  13. ALENDRONIC ACID [Concomitant]
     Active Substance: ALENDRONIC ACID
     Indication: Product used for unknown indication
  14. ALENDRONIC ACID [Concomitant]
     Active Substance: ALENDRONIC ACID
  15. ALENDRONIC ACID [Concomitant]
     Active Substance: ALENDRONIC ACID
  16. ALENDRONIC ACID [Concomitant]
     Active Substance: ALENDRONIC ACID
  17. ALENDRONIC ACID [Concomitant]
     Active Substance: ALENDRONIC ACID
  18. ALENDRONIC ACID [Concomitant]
     Active Substance: ALENDRONIC ACID
  19. BOTULINUM TOXIN TYPE A [Concomitant]
     Active Substance: BOTULINUM TOXIN TYPE A
     Indication: Product used for unknown indication
  20. BUTRANS [Concomitant]
     Active Substance: BUPRENORPHINE
     Indication: Product used for unknown indication
  21. CALCIUM CARBONATE [Concomitant]
     Active Substance: CALCIUM CARBONATE
     Indication: Product used for unknown indication
  22. CANDESARTAN [Concomitant]
     Active Substance: CANDESARTAN
     Indication: Product used for unknown indication
  23. CETIRIZINE [Concomitant]
     Active Substance: CETIRIZINE HYDROCHLORIDE
     Indication: Product used for unknown indication
  24. CETIRIZINE [Concomitant]
     Active Substance: CETIRIZINE HYDROCHLORIDE
  25. CETIRIZINE [Concomitant]
     Active Substance: CETIRIZINE HYDROCHLORIDE
  26. CETIRIZINE [Concomitant]
     Active Substance: CETIRIZINE HYDROCHLORIDE
  27. CETIRIZINE [Concomitant]
     Active Substance: CETIRIZINE HYDROCHLORIDE
  28. CETIRIZINE [Concomitant]
     Active Substance: CETIRIZINE HYDROCHLORIDE
  29. CETIRIZINE [Concomitant]
     Active Substance: CETIRIZINE HYDROCHLORIDE
  30. CETIRIZINE [Concomitant]
     Active Substance: CETIRIZINE HYDROCHLORIDE
  31. CETIRIZINE HYDROCHLORIDE [Concomitant]
     Active Substance: CETIRIZINE HYDROCHLORIDE
     Indication: Product used for unknown indication
  32. COD LIVER OIL [Concomitant]
     Active Substance: COD LIVER OIL
     Indication: Product used for unknown indication
  33. COSENTYX [Concomitant]
     Active Substance: SECUKINUMAB
     Indication: Product used for unknown indication
  34. COSENTYX [Concomitant]
     Active Substance: SECUKINUMAB
  35. COSENTYX [Concomitant]
     Active Substance: SECUKINUMAB
  36. COSENTYX [Concomitant]
     Active Substance: SECUKINUMAB
  37. COSENTYX [Concomitant]
     Active Substance: SECUKINUMAB
  38. COSENTYX [Concomitant]
     Active Substance: SECUKINUMAB
  39. DICLOFENAC [Concomitant]
     Active Substance: DICLOFENAC
     Indication: Product used for unknown indication
  40. DICLOFENAC [Concomitant]
     Active Substance: DICLOFENAC
  41. DICLOFENAC [Concomitant]
     Active Substance: DICLOFENAC
  42. DICLOFENAC DIETHYLAMINE [Concomitant]
     Active Substance: DICLOFENAC DIETHYLAMINE
     Indication: Product used for unknown indication
  43. DICLOFENAC DIETHYLAMINE [Concomitant]
     Active Substance: DICLOFENAC DIETHYLAMINE
  44. DICLOFENAC SODIUM [Concomitant]
     Active Substance: DICLOFENAC SODIUM
     Indication: Product used for unknown indication
  45. DICLOFENAC SODIUM [Concomitant]
     Active Substance: DICLOFENAC SODIUM
  46. DICLOFENAC SODIUM [Concomitant]
     Active Substance: DICLOFENAC SODIUM
  47. DICLOFENAC SODIUM [Concomitant]
     Active Substance: DICLOFENAC SODIUM
  48. ERELZI [Concomitant]
     Active Substance: ETANERCEPT-SZZS
     Indication: Product used for unknown indication
  49. ERELZI [Concomitant]
     Active Substance: ETANERCEPT-SZZS
  50. ERELZI [Concomitant]
     Active Substance: ETANERCEPT-SZZS
  51. ERGOCALCIFEROL [Concomitant]
     Active Substance: ERGOCALCIFEROL
     Indication: Product used for unknown indication
  52. ERGOCALCIFEROL [Concomitant]
     Active Substance: ERGOCALCIFEROL
  53. FLUMETHASONE [Concomitant]
     Active Substance: FLUMETHASONE
     Indication: Product used for unknown indication
  54. HYRIMOZ [Concomitant]
     Active Substance: ADALIMUMAB-ADAZ
     Indication: Product used for unknown indication
  55. HYRIMOZ [Concomitant]
     Active Substance: ADALIMUMAB-ADAZ
  56. HYRIMOZ [Concomitant]
     Active Substance: ADALIMUMAB-ADAZ
  57. HYRIMOZ [Concomitant]
     Active Substance: ADALIMUMAB-ADAZ
  58. HYRIMOZ [Concomitant]
     Active Substance: ADALIMUMAB-ADAZ
  59. HYRIMOZ [Concomitant]
     Active Substance: ADALIMUMAB-ADAZ
  60. INFLIXIMAB [Concomitant]
     Active Substance: INFLIXIMAB
     Indication: Product used for unknown indication
  61. INFLIXIMAB [Concomitant]
     Active Substance: INFLIXIMAB
  62. INFLIXIMAB [Concomitant]
     Active Substance: INFLIXIMAB
  63. INFLIXIMAB [Concomitant]
     Active Substance: INFLIXIMAB
  64. INFLIXIMAB [Concomitant]
     Active Substance: INFLIXIMAB
  65. INFLIXIMAB [Concomitant]
     Active Substance: INFLIXIMAB
  66. LEVOMILNACIPRAN [Concomitant]
     Active Substance: LEVOMILNACIPRAN
     Indication: Product used for unknown indication
  67. METHOTREXATE [Concomitant]
     Active Substance: METHOTREXATE
     Indication: Product used for unknown indication
  68. METHOTREXATE [Concomitant]
     Active Substance: METHOTREXATE
  69. METHOTREXATE [Concomitant]
     Active Substance: METHOTREXATE
  70. METHOTREXATE [Concomitant]
     Active Substance: METHOTREXATE
  71. METHOTREXATE [Concomitant]
     Active Substance: METHOTREXATE
  72. METHOTREXATE [Concomitant]
     Active Substance: METHOTREXATE
  73. METHOTREXATE [Concomitant]
     Active Substance: METHOTREXATE
  74. METHOTREXATE [Concomitant]
     Active Substance: METHOTREXATE
  75. METHOTREXATE [Concomitant]
     Active Substance: METHOTREXATE
  76. METHOTREXATE [Concomitant]
     Active Substance: METHOTREXATE
  77. METHOTREXATE [Concomitant]
     Active Substance: METHOTREXATE
  78. METHOTREXATE [Concomitant]
     Active Substance: METHOTREXATE
  79. METHOTREXATE [Concomitant]
     Active Substance: METHOTREXATE
  80. METHOTREXATE [Concomitant]
     Active Substance: METHOTREXATE
  81. METHOTREXATE [Concomitant]
     Active Substance: METHOTREXATE
  82. METHOTREXATE [Concomitant]
     Active Substance: METHOTREXATE
  83. METHOTREXATE [Concomitant]
     Active Substance: METHOTREXATE
  84. METHOTREXATE [Concomitant]
     Active Substance: METHOTREXATE
  85. METHOTREXATE [Concomitant]
     Active Substance: METHOTREXATE
  86. METHOTREXATE [Concomitant]
     Active Substance: METHOTREXATE
  87. METHOTREXATE [Concomitant]
     Active Substance: METHOTREXATE
  88. METHOTREXATE [Concomitant]
     Active Substance: METHOTREXATE
  89. METHOTREXATE [Concomitant]
     Active Substance: METHOTREXATE
  90. METHOTREXATE [Concomitant]
     Active Substance: METHOTREXATE
  91. METHOTREXATE [Concomitant]
     Active Substance: METHOTREXATE
  92. NAPROXEN [Concomitant]
     Active Substance: NAPROXEN
     Indication: Product used for unknown indication
  93. OXYCODONE [Concomitant]
     Active Substance: OXYCODONE
     Indication: Product used for unknown indication
  94. RAMIPRIL [Concomitant]
     Active Substance: RAMIPRIL
     Indication: Product used for unknown indication
  95. RAMIPRIL [Concomitant]
     Active Substance: RAMIPRIL
  96. RITUXIMAB [Concomitant]
     Active Substance: RITUXIMAB
     Indication: Product used for unknown indication
  97. RITUXIMAB [Concomitant]
     Active Substance: RITUXIMAB
  98. RITUXIMAB [Concomitant]
     Active Substance: RITUXIMAB
  99. RITUXIMAB [Concomitant]
     Active Substance: RITUXIMAB
  100. RITUXIMAB [Concomitant]
     Active Substance: RITUXIMAB
  101. RITUXIMAB [Concomitant]
     Active Substance: RITUXIMAB
  102. RITUXIMAB [Concomitant]
     Active Substance: RITUXIMAB
  103. RITUXIMAB [Concomitant]
     Active Substance: RITUXIMAB
  104. RITUXIMAB [Concomitant]
     Active Substance: RITUXIMAB
  105. RITUXIMAB [Concomitant]
     Active Substance: RITUXIMAB
  106. RITUXIMAB [Concomitant]
     Active Substance: RITUXIMAB
  107. RITUXIMAB [Concomitant]
     Active Substance: RITUXIMAB
  108. RITUXIMAB [Concomitant]
     Active Substance: RITUXIMAB
  109. RITUXIMAB [Concomitant]
     Active Substance: RITUXIMAB
  110. RITUXIMAB [Concomitant]
     Active Substance: RITUXIMAB
  111. RITUXIMAB [Concomitant]
     Active Substance: RITUXIMAB
  112. RITUXIMAB [Concomitant]
     Active Substance: RITUXIMAB
  113. RITUXIMAB [Concomitant]
     Active Substance: RITUXIMAB
  114. RITUXIMAB [Concomitant]
     Active Substance: RITUXIMAB
  115. RITUXIMAB [Concomitant]
     Active Substance: RITUXIMAB
  116. RITUXIMAB [Concomitant]
     Active Substance: RITUXIMAB
  117. RITUXIMAB [Concomitant]
     Active Substance: RITUXIMAB
  118. RITUXIMAB [Concomitant]
     Active Substance: RITUXIMAB
  119. RITUXIMAB [Concomitant]
     Active Substance: RITUXIMAB
  120. RITUXIMAB [Concomitant]
     Active Substance: RITUXIMAB
  121. RITUXIMAB [Concomitant]
     Active Substance: RITUXIMAB
  122. RITUXIMAB [Concomitant]
     Active Substance: RITUXIMAB
  123. RITUXIMAB [Concomitant]
     Active Substance: RITUXIMAB
  124. RITUXIMAB [Concomitant]
     Active Substance: RITUXIMAB
  125. RITUXIMAB [Concomitant]
     Active Substance: RITUXIMAB
  126. RITUXIMAB [Concomitant]
     Active Substance: RITUXIMAB
  127. RITUXIMAB [Concomitant]
     Active Substance: RITUXIMAB
  128. RITUXIMAB [Concomitant]
     Active Substance: RITUXIMAB
  129. RITUXIMAB [Concomitant]
     Active Substance: RITUXIMAB
  130. RITUXIMAB [Concomitant]
     Active Substance: RITUXIMAB
  131. RITUXIMAB [Concomitant]
     Active Substance: RITUXIMAB
  132. RITUXIMAB [Concomitant]
     Active Substance: RITUXIMAB
  133. RITUXIMAB [Concomitant]
     Active Substance: RITUXIMAB
  134. RITUXIMAB [Concomitant]
     Active Substance: RITUXIMAB
  135. RITUXIMAB [Concomitant]
     Active Substance: RITUXIMAB
  136. LEFLUNOMIDE [Concomitant]
     Active Substance: LEFLUNOMIDE
     Indication: Product used for unknown indication
  137. LEFLUNOMIDE [Concomitant]
     Active Substance: LEFLUNOMIDE
  138. LEFLUNOMIDE [Concomitant]
     Active Substance: LEFLUNOMIDE
  139. LEFLUNOMIDE [Concomitant]
     Active Substance: LEFLUNOMIDE
  140. LEFLUNOMIDE [Concomitant]
     Active Substance: LEFLUNOMIDE
  141. LEFLUNOMIDE [Concomitant]
     Active Substance: LEFLUNOMIDE
  142. LEFLUNOMIDE [Concomitant]
     Active Substance: LEFLUNOMIDE
  143. LEFLUNOMIDE [Concomitant]
     Active Substance: LEFLUNOMIDE
  144. LEFLUNOMIDE [Concomitant]
     Active Substance: LEFLUNOMIDE
  145. LEFLUNOMIDE [Concomitant]
     Active Substance: LEFLUNOMIDE
  146. LEFLUNOMIDE [Concomitant]
     Active Substance: LEFLUNOMIDE
  147. LEFLUNOMIDE [Concomitant]
     Active Substance: LEFLUNOMIDE
  148. STELARA [Concomitant]
     Active Substance: USTEKINUMAB
     Indication: Product used for unknown indication
  149. TRAMADOL HYDROCHLORIDE [Concomitant]
     Active Substance: TRAMADOL HYDROCHLORIDE
     Indication: Product used for unknown indication
  150. VITAMIN D3 [Concomitant]
     Active Substance: CHOLECALCIFEROL
     Indication: Product used for unknown indication

REACTIONS (2)
  - Foetal exposure during pregnancy [Unknown]
  - Congenital anomaly [Unknown]
